FAERS Safety Report 13584389 (Version 2)
Quarter: 2017Q2

REPORT INFORMATION
  Report Type: Spontaneous
  Country: US (occurrence: US)
  Receive Date: 20170526
  Receipt Date: 20170626
  Transmission Date: 20170830
  Serious: No
  Sender: FDA-Public Use
  Company Number: PHEH2017US015836

PATIENT
  Sex: Male

DRUGS (4)
  1. AFINITOR [Suspect]
     Active Substance: EVEROLIMUS
     Indication: RENAL CELL CARCINOMA
     Dosage: 5 MG, QD
     Route: 065
     Dates: start: 20170510
  2. LENVIMA [Suspect]
     Active Substance: LENVATINIB
     Indication: RENAL CELL CARCINOMA
     Dosage: 10 MG, QD
     Route: 065
     Dates: start: 20170510, end: 20170511
  3. LENVIMA [Suspect]
     Active Substance: LENVATINIB
     Dosage: 10 MG, UNK
     Route: 065
     Dates: start: 20170513
  4. LENVIMA [Suspect]
     Active Substance: LENVATINIB
     Dosage: 10 MG, UNK
     Route: 065
     Dates: start: 20170522

REACTIONS (1)
  - Diarrhoea [Not Recovered/Not Resolved]
